FAERS Safety Report 11589043 (Version 1)
Quarter: 2015Q4

REPORT INFORMATION
  Report Type: Spontaneous
  Country: None (occurrence: None)
  Receive Date: 20151001
  Receipt Date: 20151001
  Transmission Date: 20160304
  Serious: Yes (Other)
  Sender: FDA-Public Use
  Company Number: None

PATIENT
  Age: 46 Year
  Sex: Female
  Weight: 43 kg

DRUGS (3)
  1. PARACETAMOL [Concomitant]
     Active Substance: ACETAMINOPHEN
  2. DICLOFENAC [Concomitant]
     Active Substance: DICLOFENAC
  3. AMIKACIN [Suspect]
     Active Substance: AMIKACIN
     Indication: INFECTION
     Route: 042
     Dates: start: 20150903, end: 20150906

REACTIONS (3)
  - Chondropathy [None]
  - Pain [None]
  - Erythema [None]

NARRATIVE: CASE EVENT DATE: 20150903
